FAERS Safety Report 4552489-5 (Version None)
Quarter: 2005Q1

REPORT INFORMATION
  Report Type: 
  Country: None (occurrence: None)
  Receive Date: 20050112
  Receipt Date: 20041229
  Transmission Date: 20050727
  Serious: Yes (Hospitalization)
  Sender: FDA-Public Use
  Company Number: CERZ-10749

PATIENT
  Age: 73 Year
  Sex: Male

DRUGS (1)
  1. CEREZYME [Suspect]
     Indication: GAUCHER'S DISEASE
     Dosage: 1400 UNITS Q2WKS IV
     Route: 042
     Dates: start: 19970401

REACTIONS (4)
  - DEMENTIA [None]
  - FALL [None]
  - HIP FRACTURE [None]
  - PARKINSON'S DISEASE [None]
